FAERS Safety Report 21879423 (Version 2)
Quarter: 2023Q1

REPORT INFORMATION
  Report Type: Spontaneous
  Country: CO (occurrence: CO)
  Receive Date: 20230118
  Receipt Date: 20230203
  Transmission Date: 20230418
  Serious: Yes (Other)
  Sender: FDA-Public Use
  Company Number: CO-AMGEN-COLSP2022101180

PATIENT
  Age: 38 Year
  Sex: Female
  Weight: 32 kg

DRUGS (9)
  1. MVASI [Suspect]
     Active Substance: BEVACIZUMAB-AWWB
     Indication: Cervix carcinoma stage II
     Dosage: 514.5 MILLIGRAM
     Route: 042
     Dates: start: 20220509
  2. MVASI [Suspect]
     Active Substance: BEVACIZUMAB-AWWB
     Dosage: 480 MILLIGRAM, INFUSION, FOR 5 HOURS
     Route: 040
  3. FOSAPREPITANT [Concomitant]
     Active Substance: FOSAPREPITANT
     Indication: Cervix carcinoma stage II
     Dosage: 150 MILLIGRAM
     Route: 042
     Dates: start: 20220509
  4. PACLITAXEL [Concomitant]
     Active Substance: PACLITAXEL
     Indication: Cervix carcinoma stage II
     Dosage: 208.25 MILLIGRAM
     Route: 042
     Dates: start: 20220509
  5. PALONOSETRON [Concomitant]
     Active Substance: PALONOSETRON
     Indication: Cervix carcinoma stage II
     Dosage: 25 MILLIGRAM
     Route: 042
     Dates: start: 20220509
  6. CARBOPLATIN [Concomitant]
     Active Substance: CARBOPLATIN
     Indication: Cervix carcinoma stage II
     Dosage: 418.55 MILLIGRAM,INFUSION, FOR 2 HOURS
     Route: 042
     Dates: start: 20220509
  7. CARBOPLATIN [Concomitant]
     Active Substance: CARBOPLATIN
     Dosage: 254.12 MILLIGRAM, INFUSION, FOR 2 HOURS
     Route: 040
  8. DEXAMETHASONE PHOSPHATE [Concomitant]
     Active Substance: DEXAMETHASONE PHOSPHATE
     Indication: Cervix carcinoma stage II
     Dosage: 16 MILLIGRAM, BOLUS, FOR 3 MIN
     Route: 030
     Dates: start: 20220509
  9. DIPHENHYDRAMINE [Concomitant]
     Active Substance: DIPHENHYDRAMINE
     Indication: Cervix carcinoma stage II
     Dosage: 10 MILLIGRAM, BOLUS, FOR 5 MIN
     Route: 040

REACTIONS (8)
  - Urinary tract obstruction [Unknown]
  - Thrombocytopenia [Unknown]
  - Drug intolerance [Unknown]
  - Pain in extremity [Recovering/Resolving]
  - Anaemia [Unknown]
  - Constipation [Recovering/Resolving]
  - Pelvic pain [Recovering/Resolving]
  - Arthralgia [Unknown]

NARRATIVE: CASE EVENT DATE: 20220101
